FAERS Safety Report 6899976-2 (Version None)
Quarter: 2010Q3

REPORT INFORMATION
  Report Type: 
  Country: None (occurrence: None)
  Receive Date: 20100708
  Receipt Date: 20090828
  Transmission Date: 20110219
  Serious: Yes (Other)
  Sender: FDA-Public Use
  Company Number: 2009263712

PATIENT
  Age: 47 Year
  Sex: Male
  Weight: 86.2 kg

DRUGS (6)
  1. CHANTIX [Suspect]
     Indication: SMOKING CESSATION THERAPY
     Dosage: 1 MG, 2X/DAY
     Dates: start: 20090101, end: 20090801
  2. IBUPROFEN [Concomitant]
  3. WELLBUTRIN [Concomitant]
  4. PROTONIX [Concomitant]
  5. ZOCOR [Concomitant]
  6. VALIUM [Concomitant]

REACTIONS (2)
  - AGITATION [None]
  - MAJOR DEPRESSION [None]
